FAERS Safety Report 17293115 (Version 1)
Quarter: 2020Q1

REPORT INFORMATION
  Report Type: Spontaneous
  Country: US (occurrence: US)
  Receive Date: 20200103
  Receipt Date: 20200103
  Transmission Date: 20200409
  Serious: Yes (Death)
  Sender: FDA-Public Use
  Company Number: 2019001303

PATIENT
  Age: 71 Year
  Sex: Female
  Weight: 80 kg

DRUGS (1)
  1. S-649266 (CEFIDEROCOL) INTRAVENOUS INFUSION [Suspect]
     Active Substance: CEFIDEROCOL
     Indication: BACTERIAL SEPSIS
     Route: 042
     Dates: start: 20191127, end: 20191204

REACTIONS (3)
  - Sepsis [None]
  - Condition aggravated [None]
  - Multiple organ dysfunction syndrome [None]

NARRATIVE: CASE EVENT DATE: 20191204
